FAERS Safety Report 8495505-0 (Version None)
Quarter: 2012Q3

REPORT INFORMATION
  Report Type: 
  Country: None (occurrence: None)
  Receive Date: 20120709
  Receipt Date: 20120628
  Transmission Date: 20120928
  Serious: Yes (Death, Life-Threatening, Hospitalization, Other)
  Sender: FDA-Public Use
  Company Number: US-CELGENEUS-163-21880-12062676

PATIENT
  Sex: Male

DRUGS (6)
  1. MIDOCRINE [Concomitant]
     Indication: URINARY INCONTINENCE
     Dosage: 5 MILLIGRAM
     Route: 065
     Dates: start: 20110201, end: 20110617
  2. REVLIMID [Suspect]
     Indication: MULTIPLE MYELOMA
     Dosage: 10 MILLIGRAM
     Route: 048
     Dates: start: 20110217, end: 20110617
  3. DECADRON [Concomitant]
     Indication: PROPHYLAXIS
     Dosage: 20 MILLIGRAM
     Route: 048
     Dates: start: 20110217, end: 20110617
  4. STEROIDS [Concomitant]
     Route: 048
  5. ENSURE [Concomitant]
     Route: 065
  6. ALLOPURINOL [Concomitant]
     Indication: GOUT
     Dosage: 300 MILLIGRAM
     Route: 065
     Dates: start: 20110217, end: 20110617

REACTIONS (4)
  - BLOOD GLUCOSE INCREASED [None]
  - DEMENTIA [None]
  - RENAL FAILURE [None]
  - MULTIPLE MYELOMA [None]
